FAERS Safety Report 16474814 (Version 1)
Quarter: 2019Q2

REPORT INFORMATION
  Report Type: Report from Study
  Country: BR (occurrence: BR)
  Receive Date: 20190625
  Receipt Date: 20190625
  Transmission Date: 20190711
  Serious: Yes (Other)
  Sender: FDA-Public Use
  Company Number: PHHY2019BR145127

PATIENT
  Sex: Female

DRUGS (1)
  1. ENTRESTO [Suspect]
     Active Substance: SACUBITRIL\VALSARTAN
     Indication: CARDIAC FAILURE
     Dosage: 1 DF (SACUBITRIL 97 MG/ VALSARTAN 103 MG), BID
     Route: 065
     Dates: start: 201805

REACTIONS (12)
  - Abdominal pain [Unknown]
  - Abdominal pain upper [Unknown]
  - Abdominal discomfort [Unknown]
  - Lactose intolerance [Unknown]
  - Faeces soft [Unknown]
  - Nervousness [Unknown]
  - Hepatomegaly [Unknown]
  - Irritability [Unknown]
  - Hepatitis [Unknown]
  - Dyspnoea [Unknown]
  - Cardiomegaly [Unknown]
  - Rash [Unknown]
